FAERS Safety Report 4511248-X (Version None)
Quarter: 2004Q4

REPORT INFORMATION
  Report Type: 
  Country: None (occurrence: None)
  Receive Date: 20041122
  Receipt Date: 20041122
  Transmission Date: 20050328
  Serious: Yes (Other)
  Sender: FDA-Public Use
  Company Number: None

PATIENT
  Age: 39 Year
  Sex: Female
  Weight: 84.8226 kg

DRUGS (1)
  1. BEXTRA [Suspect]
     Indication: ANTIINFLAMMATORY THERAPY
     Dosage: 10MG  BID ORAL
     Route: 048
     Dates: start: 20030813, end: 20030917

REACTIONS (3)
  - CHEST DISCOMFORT [None]
  - DYSPNOEA [None]
  - OEDEMA PERIPHERAL [None]
